FAERS Safety Report 4461709-7 (Version None)
Quarter: 2004Q3

REPORT INFORMATION
  Report Type: 
  Country: None (occurrence: None)
  Receive Date: 20040924
  Receipt Date: 20040916
  Transmission Date: 20050211
  Serious: Yes (Death)
  Sender: FDA-Public Use
  Company Number: KII-2002-0002432

PATIENT
  Age: 55 Year
  Sex: Male

DRUGS (1)
  1. OXYCONTIN [Suspect]
     Indication: CANCER PAIN
     Dosage: SEE IMAGE

REACTIONS (1)
  - SMALL CELL LUNG CANCER METASTATIC [None]
